FAERS Safety Report 10921576 (Version 1)
Quarter: 2015Q1

REPORT INFORMATION
  Report Type: Spontaneous
  Country: ES (occurrence: None)
  Receive Date: 20150312
  Receipt Date: 20150312
  Transmission Date: 20150721
  Serious: Yes (Disabling, Other)
  Sender: FDA-Public Use
  Company Number: 2270705

PATIENT
  Age: 86 Year
  Sex: Female

DRUGS (3)
  1. PANITUMUMAB [Suspect]
     Active Substance: PANITUMUMAB
     Indication: COLON NEOPLASM
     Dates: start: 201211
  2. OXALIPLATIN. [Suspect]
     Active Substance: OXALIPLATIN
     Indication: COLON NEOPLASM
     Dosage: 100 MG/M2 MILLIGRAM(S)/SQ. METER (CYCLICAL)
     Dates: start: 201207
  3. RALTITREXED DISODIUM [Suspect]
     Active Substance: RALTITREXED
     Indication: COLON NEOPLASM
     Dosage: 2.25 MG/M2 MILLIGRAM(S)/SQ. METER (CYCLICAL)
     Dates: start: 201207

REACTIONS (7)
  - Pneumonia [None]
  - Metastases to liver [None]
  - Diarrhoea [None]
  - Metastases to lymph nodes [None]
  - Rash [None]
  - Decreased appetite [None]
  - Spinal cord compression [None]
